FAERS Safety Report 18422767 (Version 1)
Quarter: 2020Q4

REPORT INFORMATION
  Report Type: Spontaneous
  Country: FR (occurrence: FR)
  Receive Date: 20201024
  Receipt Date: 20201024
  Transmission Date: 20210114
  Serious: Yes (Hospitalization)
  Sender: FDA-Public Use
  Company Number: FR-ROCHE-2701667

PATIENT
  Age: 43 Year
  Sex: Male

DRUGS (4)
  1. DEPAMIDE [Suspect]
     Active Substance: VALPROMIDE
     Indication: PRODUCT USED FOR UNKNOWN INDICATION
     Route: 048
  2. SUBUTEX [Suspect]
     Active Substance: BUPRENORPHINE HYDROCHLORIDE
     Indication: PRODUCT USED FOR UNKNOWN INDICATION
     Route: 048
  3. VALIUM [Suspect]
     Active Substance: DIAZEPAM
     Indication: PRODUCT USED FOR UNKNOWN INDICATION
     Route: 048
  4. LOXAPAC [Suspect]
     Active Substance: LOXAPINE
     Indication: PRODUCT USED FOR UNKNOWN INDICATION
     Route: 048

REACTIONS (4)
  - Drug abuse [Unknown]
  - Miosis [Recovered/Resolved]
  - Bradypnoea [Recovered/Resolved]
  - Somnolence [Recovered/Resolved]

NARRATIVE: CASE EVENT DATE: 20200625
